FAERS Safety Report 9905049 (Version 1)
Quarter: 2014Q1

REPORT INFORMATION
  Report Type: Spontaneous
  Country: US (occurrence: None)
  Receive Date: 20140212
  Receipt Date: 20140212
  Transmission Date: 20141002
  Serious: Yes (Other)
  Sender: FDA-Public Use
  Company Number: None

PATIENT
  Sex: 0

DRUGS (2)
  1. MIRENA [Suspect]
  2. PROZAC [Concomitant]

REACTIONS (9)
  - Abdominal pain [None]
  - Haemorrhage [None]
  - Loss of consciousness [None]
  - Abdominal distension [None]
  - Device related infection [None]
  - Abscess rupture [None]
  - Abdominal infection [None]
  - Gastrointestinal infection [None]
  - Abdominal adhesions [None]
